FAERS Safety Report 9741772 (Version 2)
Quarter: 2013Q4

REPORT INFORMATION
  Report Type: Report from Study
  Country: GB (occurrence: GB)
  Receive Date: 20131210
  Receipt Date: 20131210
  Transmission Date: 20140711
  Serious: Yes (Other)
  Sender: FDA-Public Use
  Company Number: GB-ROCHE-GNE293799

PATIENT
  Age: 11 Year
  Sex: Female

DRUGS (1)
  1. ALTEPLASE [Suspect]
     Indication: INTRACRANIAL VENOUS SINUS THROMBOSIS
     Route: 065

REACTIONS (1)
  - Retroperitoneal haemorrhage [Recovered/Resolved]
